FAERS Safety Report 8215341-X (Version None)
Quarter: 2012Q1

REPORT INFORMATION
  Report Type: 
  Country: None (occurrence: None)
  Receive Date: 20120316
  Receipt Date: 20120309
  Transmission Date: 20120608
  Serious: Yes (Other)
  Sender: FDA-Public Use
  Company Number: US-PFIZER INC-2012016527

PATIENT
  Sex: Male
  Weight: 92.517 kg

DRUGS (1)
  1. VFEND [Suspect]
     Indication: LUNG DISORDER
     Dosage: 200 MG, 2X/DAY
     Dates: start: 20110601, end: 20120116

REACTIONS (3)
  - THROMBOCYTOPENIA [None]
  - HEPATIC ENZYME INCREASED [None]
  - TRANSPLANT REJECTION [None]
